FAERS Safety Report 7102807-9 (Version None)
Quarter: 2010Q4

REPORT INFORMATION
  Report Type: 
  Country: None (occurrence: None)
  Receive Date: 20101115
  Receipt Date: 20090713
  Transmission Date: 20110411
  Serious: No
  Sender: FDA-Public Use
  Company Number: US-KINGPHARMUSA00001-K200900833

PATIENT
  Age: 72 Year
  Sex: Male

DRUGS (1)
  1. PENICILLIN G PROCAINE [Suspect]

REACTIONS (1)
  - DRUG HYPERSENSITIVITY [None]
